FAERS Safety Report 10288281 (Version 1)
Quarter: 2014Q3

REPORT INFORMATION
  Report Type: Spontaneous
  Country: FR (occurrence: FR)
  Receive Date: 20140709
  Receipt Date: 20140709
  Transmission Date: 20150326
  Serious: Yes (Hospitalization, Other)
  Sender: FDA-Public Use
  Company Number: FR-UCBSA-2014004413

PATIENT
  Age: 85 Year
  Sex: Male

DRUGS (7)
  1. KEPPRA [Suspect]
     Active Substance: LEVETIRACETAM
     Indication: EPILEPSY
     Dosage: 250 MG, 2X/DAY (BID)
     Route: 048
     Dates: start: 20140114, end: 20140117
  2. CRESTOR [Concomitant]
     Active Substance: ROSUVASTATIN CALCIUM
  3. DECAPEPTYL [Concomitant]
     Active Substance: TRIPTORELIN ACETATE
  4. METFORMIN [Concomitant]
     Active Substance: METFORMIN HYDROCHLORIDE
  5. BICALUTAMID [Concomitant]
     Active Substance: BICALUTAMIDE
  6. KEPPRA [Suspect]
     Active Substance: LEVETIRACETAM
     Dosage: UNK
     Route: 048
     Dates: start: 20140118, end: 20140227
  7. APROVEL [Concomitant]
     Active Substance: IRBESARTAN

REACTIONS (6)
  - Confusional state [Unknown]
  - Irritability [Recovering/Resolving]
  - Femoral neck fracture [Unknown]
  - Aggression [Recovering/Resolving]
  - Psychomotor hyperactivity [Unknown]
  - Fall [Unknown]

NARRATIVE: CASE EVENT DATE: 2014
